FAERS Safety Report 17768655 (Version 3)
Quarter: 2020Q2

REPORT INFORMATION
  Report Type: Report from Study
  Country: CO (occurrence: CO)
  Receive Date: 20200512
  Receipt Date: 20200605
  Transmission Date: 20200714
  Serious: Yes (Death, Other)
  Sender: FDA-Public Use
  Company Number: CO-BRISTOL-MYERS SQUIBB COMPANY-BMS-2020-023746

PATIENT
  Age: 53 Year
  Sex: Male

DRUGS (1)
  1. NIVOLUMAB [Suspect]
     Active Substance: NIVOLUMAB
     Indication: MALIGNANT MELANOMA
     Dosage: 180 MILLIGRAM, Q2WK
     Route: 042
     Dates: start: 20200130

REACTIONS (7)
  - Abdominal pain upper [Recovering/Resolving]
  - Vomiting [Recovering/Resolving]
  - Asthenia [Unknown]
  - Death [Fatal]
  - Disorientation [Unknown]
  - Abdominal discomfort [Recovering/Resolving]
  - Brain neoplasm [Recovering/Resolving]

NARRATIVE: CASE EVENT DATE: 20200316
